FAERS Safety Report 8199748-5 (Version None)
Quarter: 2012Q1

REPORT INFORMATION
  Report Type: 
  Country: None (occurrence: None)
  Receive Date: 20120311
  Receipt Date: 20120301
  Transmission Date: 20120608
  Serious: Yes (Hospitalization)
  Sender: FDA-Public Use
  Company Number: PHFR2012GB001496

PATIENT
  Sex: Male

DRUGS (2)
  1. CLOZARIL [Suspect]
     Indication: SCHIZOPHRENIA
     Dosage: 250 MG, DAILY
     Dates: start: 19950510
  2. CLOZARIL [Suspect]
     Dosage: 50 MG, BID

REACTIONS (3)
  - MALAISE [None]
  - ALCOHOL POISONING [None]
  - ANTIPSYCHOTIC DRUG LEVEL INCREASED [None]
